FAERS Safety Report 22249139 (Version 1)
Quarter: 2023Q2

REPORT INFORMATION
  Report Type: Spontaneous
  Country: RU (occurrence: None)
  Receive Date: 20230425
  Receipt Date: 20230425
  Transmission Date: 20230722
  Serious: Yes (Other)
  Sender: FDA-Public Use
  Company Number: 2023A093247

PATIENT
  Sex: Female

DRUGS (3)
  1. NEXIUM [Suspect]
     Active Substance: ESOMEPRAZOLE MAGNESIUM
     Indication: Gastrooesophageal reflux disease
     Route: 048
  2. ITOPRIDE [Concomitant]
     Active Substance: ITOPRIDE
  3. ATARAX [Concomitant]
     Active Substance: HYDROXYZINE HYDROCHLORIDE

REACTIONS (5)
  - Asphyxia [Unknown]
  - Pharyngeal mass [Unknown]
  - Cough [Unknown]
  - Hypophagia [Unknown]
  - Agitated depression [Unknown]
